FAERS Safety Report 16778403 (Version 1)
Quarter: 2019Q3

REPORT INFORMATION
  Report Type: Spontaneous
  Country: ES (occurrence: ES)
  Receive Date: 20190906
  Receipt Date: 20190906
  Transmission Date: 20191005
  Serious: Yes (Hospitalization, Other)
  Sender: FDA-Public Use
  Company Number: PHHY2019ES191407

PATIENT
  Age: 60 Year
  Sex: Male

DRUGS (6)
  1. AMOXICILLIN+CLAVULANATE [Suspect]
     Active Substance: AMOXICILLIN\CLAVULANATE POTASSIUM
     Indication: ANTIBIOTIC THERAPY
  2. NORMAL SALINE [Concomitant]
     Active Substance: SODIUM CHLORIDE
     Indication: HYPOTENSION
     Dosage: 1000 ML, UNK
     Route: 065
  3. NORMAL SALINE [Concomitant]
     Active Substance: SODIUM CHLORIDE
     Indication: HYPOXIA
  4. AMOXICILLIN+CLAVULANATE [Suspect]
     Active Substance: AMOXICILLIN\CLAVULANATE POTASSIUM
     Indication: TOOTH DISORDER
     Dosage: 500 MG, WAS GIVEN TO THE PATIENT WITH A 30-MINUTE (CONTROLLED ORAL CHALLENGE TEST)
     Route: 048
  5. AMOXICILLIN+CLAVULANATE [Suspect]
     Active Substance: AMOXICILLIN\CLAVULANATE POTASSIUM
     Indication: ALLERGY TEST
     Dosage: 250 MG, WAS GIVEN TO THE PATIENT WITH A 30-MINUTE (CONTROLLED ORAL CHALLENGE TEST)
     Route: 048
  6. AMOXICILLIN+CLAVULANATE [Suspect]
     Active Substance: AMOXICILLIN\CLAVULANATE POTASSIUM
     Indication: DENTAL CARE
     Dosage: 125 MG, WAS GIVEN TO THE PATIENT WITH A 30-MINUTE (CONTROLLED ORAL CHALLENGE TEST)
     Route: 048

REACTIONS (17)
  - Somnolence [Unknown]
  - Hypoxia [Recovered/Resolved]
  - Metabolic acidosis [Recovered/Resolved]
  - Nausea [Recovered/Resolved]
  - Vomiting [Recovered/Resolved]
  - Groin pain [Unknown]
  - Shock [Recovered/Resolved]
  - Hypersensitivity [Recovered/Resolved]
  - Diarrhoea [Recovered/Resolved]
  - Gastrointestinal disorder [Recovered/Resolved]
  - Hyperhidrosis [Unknown]
  - Food allergy [Recovered/Resolved]
  - Allergic colitis [Recovered/Resolved]
  - Enterocolitis [Recovered/Resolved]
  - Malaise [Recovered/Resolved]
  - Neutrophilia [Recovered/Resolved]
  - Abdominal pain [Recovering/Resolving]
